FAERS Safety Report 17675928 (Version 1)
Quarter: 2020Q2

REPORT INFORMATION
  Report Type: Report from Study
  Country: US (occurrence: US)
  Receive Date: 20200416
  Receipt Date: 20200416
  Transmission Date: 20200714
  Serious: Yes (Hospitalization)
  Sender: FDA-Public Use
  Company Number: US-ASTRAZENECA-2020SE49499

PATIENT
  Age: 832 Month
  Sex: Female

DRUGS (1)
  1. CALQUENCE [Suspect]
     Active Substance: ACALABRUTINIB
     Indication: CHRONIC LYMPHOCYTIC LEUKAEMIA
     Route: 048
     Dates: start: 2009

REACTIONS (3)
  - Arthritis bacterial [Unknown]
  - Osteomyelitis [Unknown]
  - Ligament sprain [Unknown]

NARRATIVE: CASE EVENT DATE: 202001
